FAERS Safety Report 10007747 (Version 2)
Quarter: 2014Q1

REPORT INFORMATION
  Report Type: Spontaneous
  Country: US (occurrence: US)
  Receive Date: 20140313
  Receipt Date: 20140313
  Transmission Date: 20141002
  Serious: No
  Sender: FDA-Public Use
  Company Number: US-GILEAD-2012-0067022

PATIENT
  Sex: Female

DRUGS (4)
  1. LETAIRIS [Suspect]
     Indication: COR PULMONALE CHRONIC
     Dosage: 10 MG, QD
     Route: 048
     Dates: start: 20090210
  2. FLOLAN [Suspect]
  3. ADCIRCA [Suspect]
  4. TYVASO [Suspect]

REACTIONS (4)
  - Bronchitis [Unknown]
  - Upper respiratory tract infection [Unknown]
  - Ear infection [Unknown]
  - Sinusitis [Unknown]
